FAERS Safety Report 21026443 (Version 2)
Quarter: 2022Q3

REPORT INFORMATION
  Report Type: Spontaneous
  Country: JP (occurrence: JP)
  Receive Date: 20220630
  Receipt Date: 20220912
  Transmission Date: 20221027
  Serious: Yes (Death, Other)
  Sender: FDA-Public Use
  Company Number: JP-ASTELLAS-2022JP009572

PATIENT
  Age: 4 Decade

DRUGS (13)
  1. PROGRAF [Suspect]
     Active Substance: TACROLIMUS
     Indication: Lupus nephritis
     Dosage: UNK UNK, UNKNOWN FREQ.
     Route: 048
  2. PREDNISOLONE [Concomitant]
     Active Substance: PREDNISOLONE
     Indication: Product used for unknown indication
     Dosage: UNK UNK, UNKNOWN FREQ.
     Route: 048
  3. MIZORIBINE [Concomitant]
     Active Substance: MIZORIBINE
     Indication: Product used for unknown indication
     Dosage: UNK UNK, UNKNOWN FREQ.
     Route: 048
  4. RITUXAN [Concomitant]
     Active Substance: RITUXIMAB
     Indication: Lymphoma
     Dosage: UNK UNK, UNKNOWN FREQ.
     Route: 065
  5. RITUXAN [Concomitant]
     Active Substance: RITUXIMAB
     Indication: Lymphadenopathy
  6. CYCLOPHOSPHAMIDE [Concomitant]
     Active Substance: CYCLOPHOSPHAMIDE
     Indication: Lymphoma
     Dosage: UNK UNK, UNKNOWN FREQ.
     Route: 065
  7. CYCLOPHOSPHAMIDE [Concomitant]
     Active Substance: CYCLOPHOSPHAMIDE
     Indication: Lymphadenopathy
  8. DOXORUBICIN HYDROCHLORIDE [Concomitant]
     Active Substance: DOXORUBICIN HYDROCHLORIDE
     Indication: Lymphoma
     Dosage: UNK UNK, UNKNOWN FREQ.
     Route: 065
  9. DOXORUBICIN HYDROCHLORIDE [Concomitant]
     Active Substance: DOXORUBICIN HYDROCHLORIDE
     Indication: Lymphadenopathy
  10. VINCRISTINE SULFATE [Concomitant]
     Active Substance: VINCRISTINE SULFATE
     Indication: Lymphoma
     Dosage: UNK UNK, UNKNOWN FREQ.
     Route: 065
  11. VINCRISTINE SULFATE [Concomitant]
     Active Substance: VINCRISTINE SULFATE
     Indication: Lymphadenopathy
  12. PREDNISOLONE [Concomitant]
     Active Substance: PREDNISOLONE
     Indication: Lymphoma
     Dosage: UNK UNK, UNKNOWN FREQ.
     Route: 065
  13. PREDNISOLONE [Concomitant]
     Active Substance: PREDNISOLONE
     Indication: Lymphadenopathy

REACTIONS (6)
  - Lymphadenopathy [Unknown]
  - Chronic graft versus host disease [Unknown]
  - Bronchopulmonary aspergillosis [Fatal]
  - Septic shock [Fatal]
  - Lymphoma [Unknown]
  - Infection [Unknown]

NARRATIVE: CASE EVENT DATE: 20170101
